FAERS Safety Report 15267562 (Version 3)
Quarter: 2019Q1

REPORT INFORMATION
  Report Type: Spontaneous
  Country: US (occurrence: US)
  Receive Date: 20180811
  Receipt Date: 20190227
  Transmission Date: 20190417
  Serious: No
  Sender: FDA-Public Use
  Company Number: PHEH2018US032457

PATIENT
  Age: 41 Year
  Sex: Female

DRUGS (2)
  1. PROMACTA [Suspect]
     Active Substance: ELTROMBOPAG OLAMINE
     Indication: APLASTIC ANAEMIA
     Dosage: 1 DF, BID (75 MG BID)
     Route: 048
     Dates: start: 20180116
  2. PROMACTA [Suspect]
     Active Substance: ELTROMBOPAG OLAMINE
     Dosage: 75 MG, BID
     Route: 048
     Dates: start: 20180313

REACTIONS (6)
  - Chills [Unknown]
  - Vomiting [Unknown]
  - Dizziness [Unknown]
  - Pyrexia [Unknown]
  - Nausea [Unknown]
  - Balance disorder [Unknown]

NARRATIVE: CASE EVENT DATE: 20180801
